FAERS Safety Report 20634221 (Version 1)
Quarter: 2022Q1

REPORT INFORMATION
  Report Type: Spontaneous
  Country: PT (occurrence: PT)
  Receive Date: 20220324
  Receipt Date: 20220324
  Transmission Date: 20220423
  Serious: Yes (Hospitalization, Other)
  Sender: FDA-Public Use
  Company Number: PT-SNT-000231

PATIENT
  Age: 45 Year
  Sex: Female

DRUGS (5)
  1. BUPROPION [Suspect]
     Active Substance: BUPROPION
     Indication: Product use in unapproved indication
     Route: 065
  2. NALTREXONE [Suspect]
     Active Substance: NALTREXONE
     Indication: Weight decreased
     Route: 065
  3. PREDNISOLONE [Suspect]
     Active Substance: PREDNISOLONE
     Indication: Weight decreased
     Dosage: 0.5 MG/KG/D
     Route: 065
  4. CYCLOSPORINE [Suspect]
     Active Substance: CYCLOSPORINE
     Indication: Weight decreased
     Dosage: 3 MG/KG/D
     Route: 065
  5. PREDNISOLONE [Suspect]
     Active Substance: PREDNISOLONE
     Indication: Weight decreased
     Dosage: 0.25 MG/KG/D
     Route: 065

REACTIONS (5)
  - Type IV hypersensitivity reaction [Unknown]
  - Acute generalised exanthematous pustulosis [Unknown]
  - Pustular psoriasis [Unknown]
  - Dermatitis allergic [Unknown]
  - Product use in unapproved indication [Unknown]
